FAERS Safety Report 23052969 (Version 6)
Quarter: 2024Q2

REPORT INFORMATION
  Report Type: Report from Study
  Country: PL (occurrence: PL)
  Receive Date: 20231011
  Receipt Date: 20240515
  Transmission Date: 20240715
  Serious: Yes (Hospitalization, Other)
  Sender: FDA-Public Use
  Company Number: PL-AUROBINDO-AUR-APL-2023-062644

PATIENT
  Age: 27 Year
  Sex: Male

DRUGS (35)
  1. CYCLOSPORINE [Suspect]
     Active Substance: CYCLOSPORINE
     Indication: Systemic lupus erythematosus
     Dosage: 200 MILLIGRAM, DAILY
     Route: 048
  2. CYCLOSPORINE [Suspect]
     Active Substance: CYCLOSPORINE
     Dosage: 250 MILLIGRAM, DAILY
     Route: 048
  3. SERTRALINE [Interacting]
     Active Substance: SERTRALINE HYDROCHLORIDE
     Indication: Product used for unknown indication
     Dosage: UNK
     Route: 065
  4. ALCOHOL [Interacting]
     Active Substance: ALCOHOL
     Indication: Product used for unknown indication
     Dosage: UNK
     Route: 065
  5. METHYLPREDNISOLONE [Suspect]
     Active Substance: METHYLPREDNISOLONE
     Indication: Overlap syndrome
     Dosage: UNK
     Route: 042
  6. METHYLPREDNISOLONE [Suspect]
     Active Substance: METHYLPREDNISOLONE
     Dosage: 500 MILLIGRAM (6 PULSES)
     Route: 042
  7. METHYLPREDNISOLONE [Suspect]
     Active Substance: METHYLPREDNISOLONE
     Dosage: 125 MILLIGRAM (5 INFUSIONS)
     Route: 065
  8. METHYLPREDNISOLONE [Suspect]
     Active Substance: METHYLPREDNISOLONE
     Dosage: 125 MILLIGRAM
     Route: 042
  9. METHYLPREDNISOLONE [Suspect]
     Active Substance: METHYLPREDNISOLONE
     Dosage: UNK
     Route: 042
  10. MYCOPHENOLATE MOFETIL [Suspect]
     Active Substance: MYCOPHENOLATE MOFETIL
     Indication: Sjogren^s syndrome
     Dosage: UNK
     Route: 065
     Dates: start: 202204, end: 2022
  11. MYCOPHENOLATE MOFETIL [Suspect]
     Active Substance: MYCOPHENOLATE MOFETIL
     Indication: Dermatomyositis
  12. MYCOPHENOLATE MOFETIL [Suspect]
     Active Substance: MYCOPHENOLATE MOFETIL
     Indication: Overlap syndrome
  13. MYCOPHENOLATE MOFETIL [Suspect]
     Active Substance: MYCOPHENOLATE MOFETIL
     Indication: Systemic lupus erythematosus
  14. MYCOPHENOLATE MOFETIL [Suspect]
     Active Substance: MYCOPHENOLATE MOFETIL
     Indication: Product used for unknown indication
     Dosage: UNK
     Route: 065
  15. PREDNISOLONE [Concomitant]
     Active Substance: PREDNISOLONE
     Indication: Dermatomyositis
     Dosage: 60 MILLIGRAM, DAILY
     Route: 048
  16. PREDNISOLONE [Concomitant]
     Active Substance: PREDNISOLONE
     Indication: Sjogren^s syndrome
     Dosage: 40 MILLIGRAM, DAILY
     Route: 048
  17. PREDNISOLONE [Concomitant]
     Active Substance: PREDNISOLONE
     Indication: Overlap syndrome
     Dosage: 20 MILLIGRAM, DAILY
     Route: 048
  18. PREDNISOLONE [Concomitant]
     Active Substance: PREDNISOLONE
     Indication: Systemic lupus erythematosus
     Dosage: UNK (SLOW REDUCTION)
     Route: 065
  19. METHYLPREDNISOLONE [Concomitant]
     Active Substance: METHYLPREDNISOLONE
     Indication: Systemic lupus erythematosus
     Dosage: 500 MILLIGRAM,6 PULSES
     Route: 065
     Dates: start: 2020
  20. METHYLPREDNISOLONE [Concomitant]
     Active Substance: METHYLPREDNISOLONE
     Indication: Dermatomyositis
     Dosage: UNK,PULSES
     Route: 065
     Dates: start: 2020
  21. METHYLPREDNISOLONE [Concomitant]
     Active Substance: METHYLPREDNISOLONE
     Indication: Overlap syndrome
     Dosage: 250 MILLIGRAM,
     Route: 065
  22. METHYLPREDNISOLONE [Concomitant]
     Active Substance: METHYLPREDNISOLONE
     Indication: Sjogren^s syndrome
     Dosage: UNK
     Route: 042
     Dates: start: 202208
  23. METHYLPREDNISOLONE [Concomitant]
     Active Substance: METHYLPREDNISOLONE
     Dosage: 500 MILLIGRAM,6 PULSES
     Route: 065
     Dates: start: 2020
  24. VITAMIN B12 [Concomitant]
     Active Substance: CYANOCOBALAMIN
     Indication: Vitamin B12 deficiency
     Dosage: 3 DOSAGE FORM (1000J EACH)
     Route: 065
  25. Immunoglobulin [Concomitant]
     Indication: Leukopenia
     Dosage: 80 GRAM EVERY MONTH
     Route: 065
     Dates: start: 202203
  26. Immunoglobulin [Concomitant]
     Indication: Lymphopenia
  27. BISOPROLOL [Concomitant]
     Active Substance: BISOPROLOL\BISOPROLOL FUMARATE
     Indication: Product used for unknown indication
     Dosage: UNK
     Route: 065
  28. PREDNISONE [Concomitant]
     Active Substance: PREDNISONE
     Indication: Sjogren^s syndrome
     Dosage: 60 MILLIGRAM, DAILY
     Route: 048
  29. PREDNISONE [Concomitant]
     Active Substance: PREDNISONE
     Indication: Systemic lupus erythematosus
     Dosage: 20 MILLIGRAM, DAILY
     Route: 048
  30. PREDNISONE [Concomitant]
     Active Substance: PREDNISONE
     Indication: Overlap syndrome
     Dosage: 60 MILLIGRAM, DAILY
  31. PREDNISONE [Concomitant]
     Active Substance: PREDNISONE
     Indication: Dermatomyositis
     Dosage: 40 MILLIGRAM, ONCE A DAY
     Route: 048
  32. CYCLOSPORINE [Concomitant]
     Active Substance: CYCLOSPORINE
     Indication: Dermatomyositis
     Dosage: UNK
     Route: 065
     Dates: start: 2020
  33. CYCLOSPORINE [Concomitant]
     Active Substance: CYCLOSPORINE
     Indication: Overlap syndrome
     Dosage: 200 MILLIGRAM,
     Route: 065
     Dates: start: 2020
  34. CYCLOSPORINE [Concomitant]
     Active Substance: CYCLOSPORINE
     Indication: Systemic lupus erythematosus
     Dosage: UNK
     Route: 065
     Dates: start: 202008
  35. CYCLOSPORINE [Concomitant]
     Active Substance: CYCLOSPORINE
     Indication: Sjogren^s syndrome
     Dosage: 250 MILLIGRAM, ONCE A DAY
     Route: 065
     Dates: start: 202009

REACTIONS (20)
  - Drug interaction [Unknown]
  - Sjogren^s syndrome [Recovering/Resolving]
  - Dermatomyositis [Recovering/Resolving]
  - Overlap syndrome [Recovering/Resolving]
  - Systemic lupus erythematosus [Recovering/Resolving]
  - Liver injury [Recovering/Resolving]
  - Impaired work ability [Unknown]
  - Transaminases increased [Unknown]
  - Therapeutic product effect incomplete [Unknown]
  - Dry mouth [Unknown]
  - Night sweats [Unknown]
  - Skin lesion [Unknown]
  - Muscular weakness [Unknown]
  - Pyrexia [Unknown]
  - Medication error [Unknown]
  - Drug level below therapeutic [Unknown]
  - Drug intolerance [Unknown]
  - Drug ineffective [Unknown]
  - Device effect incomplete [Unknown]
  - Off label use [Unknown]

NARRATIVE: CASE EVENT DATE: 20200101
